FAERS Safety Report 9250515 (Version 2)
Quarter: 2014Q1

REPORT INFORMATION
  Report Type: Spontaneous
  Country: US (occurrence: None)
  Receive Date: 20130305
  Receipt Date: 20140306
  Transmission Date: 20141002
  Serious: Yes (Other)
  Sender: FDA-Public Use
  Company Number: 163-21880-12093130

PATIENT
  Age: 82 Year
  Sex: Female
  Weight: 81.65 kg

DRUGS (17)
  1. REVLIMID (LENALIDOMIDE) (CAPSULES) [Suspect]
     Indication: MYELODYSPLASTIC SYNDROME
     Dosage: 21 IN 28 D
     Route: 048
     Dates: start: 20120818
  2. REVLIMID (LENALIDOMIDE) (CAPSULES) [Suspect]
     Indication: PLASMA CELL MYELOMA
     Dosage: 21 IN 28 D
     Route: 048
     Dates: start: 20120818
  3. AMBIEN [Concomitant]
  4. ASA (ACETYLSALICYLIC ACID) [Concomitant]
  5. BACTRIM [Concomitant]
  6. DECADRON [Concomitant]
  7. GABAPENTIN [Concomitant]
  8. GLIPIZIDE [Concomitant]
  9. LIPITOR (ATORVASTATIN) [Concomitant]
  10. MICARDIS (TELMISARTAN) [Concomitant]
  11. COMPAZINE [Concomitant]
  12. SYNTHROID (LEVOTHYROXINE SODIUM) [Concomitant]
  13. TYLENOL ARTHRITIS [Concomitant]
  14. ADULT LOW DOSE ASPIRIN (ACETYLSALICYLIC ACID) [Concomitant]
  15. LORAZEPAM [Concomitant]
  16. PRCHLORPERAZINE [Concomitant]
  17. CELEXA (CITALOPRAM HYDROBROMIDE) [Concomitant]

REACTIONS (5)
  - Nausea [None]
  - Vomiting [None]
  - Weight decreased [None]
  - Hypoaesthesia [None]
  - Tooth abscess [None]
